FAERS Safety Report 7833879-1 (Version None)
Quarter: 2011Q4

REPORT INFORMATION
  Report Type: 
  Country: None (occurrence: None)
  Receive Date: 20111024
  Receipt Date: 20111010
  Transmission Date: 20120403
  Serious: Yes (Life-Threatening, Hospitalization, Other)
  Sender: FDA-Public Use
  Company Number: PL-ROCHE-257248

PATIENT
  Sex: Male
  Weight: 81 kg

DRUGS (5)
  1. ANTIPYRETIC NOS [Concomitant]
  2. HOMEOPATHIC DRUG NOS [Concomitant]
  3. APAP TAB [Concomitant]
  4. BACTRIM DS [Suspect]
     Indication: INFLUENZA LIKE ILLNESS
     Route: 048
  5. UNKNOWN DRUG [Concomitant]
     Dosage: DRUG REPORTED AS UNDEFINED SYRUP.

REACTIONS (16)
  - RASH [None]
  - BLISTER [None]
  - LYMPHADENOPATHY [None]
  - RESPIRATORY FAILURE [None]
  - RENAL FAILURE [None]
  - TOXIC EPIDERMAL NECROLYSIS [None]
  - PYREXIA [None]
  - OCULAR HYPERAEMIA [None]
  - SCARLET FEVER [None]
  - OROPHARYNGEAL PAIN [None]
  - VOMITING [None]
  - SEPSIS [None]
  - ARTHRALGIA [None]
  - INFECTIOUS MONONUCLEOSIS [None]
  - LOSS OF CONSCIOUSNESS [None]
  - PEMPHIGOID [None]
